FAERS Safety Report 12483153 (Version 1)
Quarter: 2016Q2

REPORT INFORMATION
  Report Type: Report from Study
  Country: DK (occurrence: DK)
  Receive Date: 20160620
  Receipt Date: 20160620
  Transmission Date: 20160815
  Serious: Yes (Hospitalization)
  Sender: FDA-Public Use
  Company Number: DK-AMGEN-DNKNI2016049430

PATIENT
  Age: 65 Year
  Sex: Female
  Weight: 124 kg

DRUGS (2)
  1. EBETREX [Suspect]
     Active Substance: METHOTREXATE SODIUM
     Indication: RHEUMATOID ARTHRITIS
     Dosage: UNK
     Route: 058
     Dates: start: 20060406
  2. ETANERCEPT [Suspect]
     Active Substance: ETANERCEPT
     Indication: RHEUMATOID ARTHRITIS
     Dosage: 50 MG, QWK
     Route: 058
     Dates: start: 20080110

REACTIONS (4)
  - Staphylococcal abscess [Unknown]
  - Postoperative abscess [Unknown]
  - Necrotising soft tissue infection [Unknown]
  - Graft infection [Not Recovered/Not Resolved]

NARRATIVE: CASE EVENT DATE: 201601
